FAERS Safety Report 8013984-X (Version None)
Quarter: 2011Q4

REPORT INFORMATION
  Report Type: 
  Country: None (occurrence: None)
  Receive Date: 20111229
  Receipt Date: 20111220
  Transmission Date: 20120403
  Serious: Yes (Other)
  Sender: FDA-Public Use
  Company Number: CN-ASTRAZENECA-2011SE76865

PATIENT
  Sex: Female

DRUGS (3)
  1. LIDOCAINE [Suspect]
     Indication: ANAESTHESIA PROCEDURE
     Route: 042
  2. PROPOFOL [Suspect]
     Indication: ANAESTHESIA PROCEDURE
     Dosage: 2MG/KG
     Route: 042
  3. FENTANYL [Suspect]
     Indication: ANAESTHESIA PROCEDURE
     Dosage: 1UG/KG
     Route: 042

REACTIONS (2)
  - PROCEDURAL PAIN [None]
  - POST ABORTION COMPLICATION [None]
